FAERS Safety Report 9437834 (Version 1)
Quarter: 2013Q2

REPORT INFORMATION
  Report Type: Spontaneous
  Country: US (occurrence: None)
  Receive Date: 20130626
  Receipt Date: 20130626
  Transmission Date: 20140414
  Serious: No
  Sender: FDA-Public Use
  Company Number: None

PATIENT
  Age: 63 Year
  Sex: Male
  Weight: 86.8 kg

DRUGS (1)
  1. BIVIGAM [Suspect]
     Indication: POLYMYOSITIS
     Dosage: 45 GM QWK IV
     Route: 042
     Dates: start: 20130615

REACTIONS (2)
  - Product closure issue [None]
  - Product quality issue [None]
